FAERS Safety Report 6832843-9 (Version None)
Quarter: 2010Q3

REPORT INFORMATION
  Report Type: 
  Country: None (occurrence: None)
  Receive Date: 20100712
  Receipt Date: 20070322
  Transmission Date: 20110219
  Serious: No
  Sender: FDA-Public Use
  Company Number: US-PFIZER INC-2007023626

PATIENT
  Sex: Female
  Weight: 99.79 kg

DRUGS (9)
  1. CHANTIX [Suspect]
     Indication: SMOKING CESSATION THERAPY
     Dates: start: 20070320
  2. WELLBUTRIN XL [Suspect]
     Indication: SMOKING CESSATION THERAPY
     Dates: start: 20070101, end: 20070319
  3. ZESTORETIC [Concomitant]
  4. CALAN [Concomitant]
  5. SYNTHROID [Concomitant]
  6. MEVACOR [Concomitant]
  7. VICODIN [Concomitant]
  8. ADVIL LIQUI-GELS [Concomitant]
  9. ACETYLSALICYLIC ACID [Concomitant]

REACTIONS (8)
  - CHILLS [None]
  - DIZZINESS [None]
  - DRUG INEFFECTIVE [None]
  - FATIGUE [None]
  - GASTROENTERITIS VIRAL [None]
  - HEADACHE [None]
  - PYREXIA [None]
  - VOMITING [None]
